FAERS Safety Report 20779393 (Version 1)
Quarter: 2022Q2

REPORT INFORMATION
  Report Type: Spontaneous
  Country: US (occurrence: None)
  Receive Date: 20220503
  Receipt Date: 20220503
  Transmission Date: 20220720
  Serious: No
  Sender: FDA-Public Use
  Company Number: 2022A168361

PATIENT
  Sex: Female
  Weight: 72.6 kg

DRUGS (2)
  1. BYDUREON BCISE [Suspect]
     Active Substance: EXENATIDE
     Indication: Diabetes mellitus
     Dosage: 2.0MG UNKNOWN
     Route: 058
  2. BYETTA [Suspect]
     Active Substance: EXENATIDE
     Route: 058

REACTIONS (8)
  - Costochondritis [Unknown]
  - Circadian rhythm sleep disorder [Unknown]
  - Confusional state [Unknown]
  - Malaise [Unknown]
  - Fatigue [Unknown]
  - Incorrect dose administered by device [Unknown]
  - Wrong technique in product usage process [Unknown]
  - Device leakage [Unknown]

NARRATIVE: CASE EVENT DATE: 20220427
